FAERS Safety Report 9688926 (Version 1)
Quarter: 2013Q4

REPORT INFORMATION
  Report Type: Spontaneous
  Country: GB (occurrence: GB)
  Receive Date: 20131114
  Receipt Date: 20131114
  Transmission Date: 20140711
  Serious: Yes (Hospitalization, Other)
  Sender: FDA-Public Use
  Company Number: PHHY2013GB127959

PATIENT
  Age: 3 Year
  Sex: Female

DRUGS (4)
  1. DIAZEPAM [Suspect]
     Indication: CONVULSION
     Route: 054
     Dates: start: 20130822
  2. BUCCOLAM [Interacting]
     Indication: CONVULSION
     Dosage: 5 MG, UNK
     Route: 002
     Dates: start: 20130807
  3. SERETIDE [Concomitant]
     Indication: RESPIRATORY DISORDER
     Route: 045
  4. MONTELUKAST [Concomitant]
     Indication: RESPIRATORY DISORDER

REACTIONS (8)
  - Lower respiratory tract infection [Recovering/Resolving]
  - Endotracheal intubation [Recovered/Resolved]
  - Heart rate increased [Recovered/Resolved]
  - Dyspnoea [Recovered/Resolved]
  - Oxygen saturation decreased [Recovered/Resolved]
  - Agitation [Recovered/Resolved]
  - Labelled drug-drug interaction medication error [Recovered/Resolved]
  - Drug effect decreased [Unknown]
